FAERS Safety Report 15897444 (Version 2)
Quarter: 2019Q2

REPORT INFORMATION
  Report Type: Report from Study
  Country: US (occurrence: US)
  Receive Date: 20190131
  Receipt Date: 20190617
  Transmission Date: 20190711
  Serious: Yes (Other)
  Sender: FDA-Public Use
  Company Number: PHEH2019US004409

PATIENT
  Age: 38 Year
  Sex: Male

DRUGS (2)
  1. GILENYA [Suspect]
     Active Substance: FINGOLIMOD HYDROCHLORIDE
     Indication: MULTIPLE SCLEROSIS
     Dosage: 0.5 MG, QD
     Route: 048
     Dates: start: 20171002
  2. GILENYA [Suspect]
     Active Substance: FINGOLIMOD HYDROCHLORIDE
     Dosage: 0.5 MG, Q48H
     Route: 048

REACTIONS (4)
  - Weight decreased [Recovering/Resolving]
  - Prescribed underdose [Unknown]
  - White blood cell count decreased [Recovering/Resolving]
  - Extrasystoles [Recovered/Resolved]

NARRATIVE: CASE EVENT DATE: 20190102
